FAERS Safety Report 8522799-5 (Version None)
Quarter: 2012Q3

REPORT INFORMATION
  Report Type: 
  Country: None (occurrence: None)
  Receive Date: 20120719
  Receipt Date: 20120705
  Transmission Date: 20120928
  Serious: Yes (Other)
  Sender: FDA-Public Use
  Company Number: CHPA2012US015075

PATIENT
  Age: 4 Year
  Sex: Female

DRUGS (1)
  1. TRIAMINIC INFANT DROPS FEVER REDUCER PAIN RELIEVER [Suspect]
     Dosage: ONE DOSE, ONCE
     Route: 048
     Dates: start: 20120704, end: 20120704

REACTIONS (1)
  - HALLUCINATION [None]
